FAERS Safety Report 5561026-8 (Version None)
Quarter: 2007Q4

REPORT INFORMATION
  Report Type: 
  Country: None (occurrence: None)
  Receive Date: 20071215
  Receipt Date: 20071129
  Transmission Date: 20080405
  Serious: No
  Sender: FDA-Public Use
  Company Number: US-ABBOTT-07P-163-0426789-00

PATIENT
  Sex: Female
  Weight: 52.21 kg

DRUGS (3)
  1. HUMIRA [Suspect]
     Indication: CROHN'S DISEASE
     Route: 058
     Dates: start: 20071101, end: 20071115
  2. HUMIRA [Suspect]
     Route: 058
     Dates: start: 20071115, end: 20071129
  3. HUMIRA [Suspect]
     Route: 058
     Dates: start: 20071129

REACTIONS (3)
  - ABDOMINAL PAIN UPPER [None]
  - ARTHRALGIA [None]
  - CROHN'S DISEASE [None]
